FAERS Safety Report 12228556 (Version 1)
Quarter: 2016Q2

REPORT INFORMATION
  Report Type: Spontaneous
  Country: US (occurrence: US)
  Receive Date: 20160401
  Receipt Date: 20160401
  Transmission Date: 20160815
  Serious: No
  Sender: FDA-Public Use
  Company Number: US-PFIZER INC-2016180894

PATIENT
  Sex: Male
  Weight: 97.51 kg

DRUGS (2)
  1. RELPAX [Suspect]
     Active Substance: ELETRIPTAN HYDROBROMIDE
     Indication: MIGRAINE
     Dosage: 40 MG, AS NEEDED
     Route: 048
     Dates: start: 2015, end: 2016
  2. SUBUTEX [Interacting]
     Active Substance: BUPRENORPHINE HYDROCHLORIDE
     Indication: MIGRAINE
     Dosage: UNK

REACTIONS (3)
  - Anxiety [Unknown]
  - Drug interaction [Unknown]
  - Nervousness [Unknown]

NARRATIVE: CASE EVENT DATE: 2016
